FAERS Safety Report 25072770 (Version 1)
Quarter: 2025Q1

REPORT INFORMATION
  Report Type: Spontaneous
  Country: US (occurrence: US)
  Receive Date: 20250313
  Receipt Date: 20250313
  Transmission Date: 20250408
  Serious: Yes (Other)
  Sender: COOPERSURGICAL
  Company Number: US-COOPERSURGICAL, INC.-2025CPS001730

PATIENT
  Sex: Female
  Weight: 77.098 kg

DRUGS (1)
  1. PARAGARD T 380A [Suspect]
     Active Substance: COPPER
     Indication: Contraception
     Route: 015
     Dates: start: 2014

REACTIONS (10)
  - Uterine injury [Recovered/Resolved]
  - Hysterectomy [Not Recovered/Not Resolved]
  - Reproductive complication associated with device [Not Recovered/Not Resolved]
  - Uterine perforation [Recovered/Resolved]
  - Abnormal uterine bleeding [Recovered/Resolved]
  - Depression [Not Recovered/Not Resolved]
  - Post-traumatic stress disorder [Not Recovered/Not Resolved]
  - Anxiety [Unknown]
  - Phantom limb syndrome [Unknown]
  - Pain [Not Recovered/Not Resolved]

NARRATIVE: CASE EVENT DATE: 20170101
